FAERS Safety Report 6991386-2 (Version None)
Quarter: 2010Q3

REPORT INFORMATION
  Report Type: 
  Country: None (occurrence: None)
  Receive Date: 20100916
  Receipt Date: 20090714
  Transmission Date: 20110219
  Serious: No
  Sender: FDA-Public Use
  Company Number: US-WYE-H09676609

PATIENT
  Age: 49 Year
  Sex: Female
  Weight: 59.93 kg

DRUGS (2)
  1. ADVIL PM [Suspect]
     Indication: INSOMNIA
     Dosage: TOOK 2 LIQUI-GELS ONCE
     Route: 048
     Dates: start: 20090604, end: 20090604
  2. ADVIL PM [Suspect]
     Indication: PAIN

REACTIONS (3)
  - CONDITION AGGRAVATED [None]
  - DRUG INEFFECTIVE [None]
  - RESTLESS LEGS SYNDROME [None]
